FAERS Safety Report 10102359 (Version 5)
Quarter: 2014Q4

REPORT INFORMATION
  Report Type: Spontaneous
  Country: CN (occurrence: CN)
  Receive Date: 20140424
  Receipt Date: 20141022
  Transmission Date: 20150528
  Serious: Yes (Hospitalization, Other)
  Sender: FDA-Public Use
  Company Number: PHHY2014CN039238

PATIENT
  Age: 57 Year
  Sex: Female
  Weight: 77.9 kg

DRUGS (2)
  1. TEGRETOL [Suspect]
     Active Substance: CARBAMAZEPINE
     Dosage: 1/3 TABLET PER TIME
     Route: 048
  2. TEGRETOL [Suspect]
     Active Substance: CARBAMAZEPINE
     Indication: NEURALGIA
     Dosage: 100 MG, BID
     Route: 048
     Dates: start: 20140311, end: 20140411

REACTIONS (37)
  - Drug eruption [Recovering/Resolving]
  - Eye movement disorder [Recovering/Resolving]
  - Anal erosion [Recovering/Resolving]
  - Lethargy [Recovering/Resolving]
  - Wrong technique in drug usage process [Unknown]
  - Erythema multiforme [Recovered/Resolved]
  - Scab [Recovering/Resolving]
  - Visual acuity reduced [Recovering/Resolving]
  - Oropharyngeal pain [Recovering/Resolving]
  - Pharyngeal ulceration [Recovering/Resolving]
  - Cough [Recovered/Resolved]
  - Cardiomegaly [Recovering/Resolving]
  - Loss of consciousness [Recovering/Resolving]
  - Conjunctival hyperaemia [Recovered/Resolved]
  - Face oedema [Recovering/Resolving]
  - Corneal erosion [Recovering/Resolving]
  - Brain natriuretic peptide increased [Recovering/Resolving]
  - Platelet count decreased [Recovering/Resolving]
  - Skin erosion [Recovering/Resolving]
  - Oral mucosa erosion [Recovered/Resolved]
  - Erythema [Recovering/Resolving]
  - Pyrexia [Recovered/Resolved]
  - Blister [Recovering/Resolving]
  - Gallbladder polyp [Recovering/Resolving]
  - Eye discharge [Recovered/Resolved]
  - Oral pain [Recovering/Resolving]
  - Drug hypersensitivity [Recovering/Resolving]
  - Dizziness [Recovering/Resolving]
  - Skin ulcer [Recovering/Resolving]
  - Oral mucosal blistering [Recovering/Resolving]
  - Dysphagia [Recovering/Resolving]
  - Rash generalised [Recovering/Resolving]
  - Lower respiratory tract inflammation [Recovering/Resolving]
  - Chest X-ray abnormal [Recovering/Resolving]
  - Lip ulceration [Recovering/Resolving]
  - Mucosal ulceration [Recovering/Resolving]
  - Tremor [Recovering/Resolving]

NARRATIVE: CASE EVENT DATE: 20140311
